FAERS Safety Report 4868127-8 (Version None)
Quarter: 2005Q4

REPORT INFORMATION
  Report Type: 
  Country: None (occurrence: None)
  Receive Date: 20051229
  Receipt Date: 20051220
  Transmission Date: 20060501
  Serious: Yes (Disabling)
  Sender: FDA-Public Use
  Company Number: PHBS2005IT18807

PATIENT
  Age: 58 Year
  Sex: Female

DRUGS (5)
  1. ZOMETA [Suspect]
     Indication: METASTASES TO BONE
     Dosage: 4 MG, QMO
     Route: 042
     Dates: start: 20020101, end: 20051130
  2. AREDIA [Suspect]
     Indication: METASTASES TO BONE
     Dosage: 90 MG, QMO
     Route: 042
     Dates: start: 20010101, end: 20020101
  3. THALIDOMIDE [Concomitant]
     Dates: start: 20020101, end: 20030501
  4. CORTISONE ACETATE TAB [Concomitant]
  5. CHEMOTHERAPEUTICS,OTHER [Concomitant]

REACTIONS (2)
  - HYPERBARIC OXYGEN THERAPY [None]
  - OSTEOMYELITIS CHRONIC [None]
